FAERS Safety Report 8808634 (Version 1)
Quarter: 2012Q4

REPORT INFORMATION
  Report Type: Spontaneous
  Country: US (occurrence: None)
  Receive Date: 20120920
  Receipt Date: 20120920
  Transmission Date: 20130627
  Serious: Yes (Hospitalization)
  Sender: FDA-Public Use
  Company Number: None

PATIENT
  Sex: Female
  Weight: 77.11 kg

DRUGS (1)
  1. VENOFER [Suspect]
     Indication: MICROCYTIC ANEMIA
     Route: 041
     Dates: start: 20120727, end: 20120728

REACTIONS (5)
  - Presyncope [None]
  - Anaemia [None]
  - Injection site swelling [None]
  - Injection site pain [None]
  - Thrombosis [None]
